FAERS Safety Report 21838102 (Version 1)
Quarter: 2023Q1

REPORT INFORMATION
  Report Type: Spontaneous
  Country: US (occurrence: US)
  Receive Date: 20230109
  Receipt Date: 20230109
  Transmission Date: 20230418
  Serious: Yes (Other)
  Sender: FDA-Public Use
  Company Number: US-AMNEAL PHARMACEUTICALS-2022-AMRX-04288

PATIENT
  Age: 20 Year
  Sex: Male

DRUGS (4)
  1. OXCARBAZEPINE [Suspect]
     Active Substance: OXCARBAZEPINE
     Indication: Antipsychotic therapy
     Route: 065
  2. TOPIRAMATE [Suspect]
     Active Substance: TOPIRAMATE
     Indication: Antipsychotic therapy
     Route: 065
  3. LORAZEPAM [Concomitant]
     Active Substance: LORAZEPAM
     Indication: Antipsychotic therapy
  4. CLONIDINE [Concomitant]
     Active Substance: CLONIDINE
     Indication: Antipsychotic therapy

REACTIONS (1)
  - Neuroleptic malignant syndrome [Recovered/Resolved]
